FAERS Safety Report 5372747-4 (Version None)
Quarter: 2007Q2

REPORT INFORMATION
  Report Type: 
  Country: None (occurrence: None)
  Receive Date: 20070621
  Receipt Date: 20060705
  Transmission Date: 20071010
  Serious: Yes (Other)
  Sender: FDA-Public Use
  Company Number: 28751

PATIENT
  Age: 61 Year
  Sex: Male

DRUGS (6)
  1. MITOMYCIN [Suspect]
     Indication: BLADDER CANCER
     Dosage: 40MG IN 80CC 0.9% NACI/INTRA
     Dates: start: 20060613
  2. MITOMYCIN [Suspect]
     Indication: BLADDER CANCER
     Dosage: 40MG IN 80CC 0.9% NACI/INTRA
     Dates: start: 20060620
  3. MITOMYCIN [Suspect]
     Indication: BLADDER CANCER
     Dosage: 40MG IN 80CC 0.9% NACI/INTRA
     Dates: start: 20060629
  4. ZOCOR [Concomitant]
  5. ZESTRIL [Concomitant]
  6. ASPIRIN [Concomitant]

REACTIONS (3)
  - BLISTER [None]
  - OEDEMA [None]
  - PRURITUS [None]
